FAERS Safety Report 6542124-9 (Version None)
Quarter: 2010Q1

REPORT INFORMATION
  Report Type: 
  Country: None (occurrence: None)
  Receive Date: 20100119
  Receipt Date: 20100112
  Transmission Date: 20100710
  Serious: Yes (Hospitalization)
  Sender: FDA-Public Use
  Company Number: IT-ABBOTT-10P-083-0618970-00

PATIENT
  Sex: Female

DRUGS (4)
  1. VECLAM [Suspect]
     Indication: HELICOBACTER INFECTION
     Route: 048
     Dates: start: 20090210, end: 20090210
  2. ZIMOX [Suspect]
     Indication: HELICOBACTER INFECTION
     Route: 048
     Dates: start: 20090210, end: 20090210
  3. ANTRA [Suspect]
     Indication: DRUG USE FOR UNKNOWN INDICATION
     Route: 048
     Dates: start: 20090210, end: 20090210
  4. POLASE [Suspect]
     Indication: DRUG USE FOR UNKNOWN INDICATION
     Route: 048
     Dates: start: 20090210, end: 20090210

REACTIONS (2)
  - PRURITUS GENERALISED [None]
  - URTICARIA [None]
